FAERS Safety Report 7490669-X (Version None)
Quarter: 2011Q2

REPORT INFORMATION
  Report Type: 
  Country: None (occurrence: None)
  Receive Date: 20110517
  Receipt Date: 20110517
  Transmission Date: 20111010
  Serious: Yes (Hospitalization)
  Sender: FDA-Public Use
  Company Number: None

PATIENT
  Age: 51 Year
  Sex: Female

DRUGS (1)
  1. LATUDA [Suspect]
     Indication: SCHIZOPHRENIA
     Dosage: 40MG DAILY PO  ONE DAY
     Route: 048
     Dates: start: 20110507, end: 20110507

REACTIONS (11)
  - DISORIENTATION [None]
  - PSYCHOMOTOR HYPERACTIVITY [None]
  - DELIRIUM [None]
  - HALLUCINATION [None]
  - AGITATION [None]
  - FALL [None]
  - HYPERHIDROSIS [None]
  - MUSCLE RIGIDITY [None]
  - EXTRAPYRAMIDAL DISORDER [None]
  - POSTURE ABNORMAL [None]
  - RESTLESSNESS [None]
